FAERS Safety Report 4956894-4 (Version None)
Quarter: 2006Q1

REPORT INFORMATION
  Report Type: 
  Country: None (occurrence: None)
  Receive Date: 20060323
  Receipt Date: 20060313
  Transmission Date: 20060701
  Serious: Yes (Hospitalization, Other)
  Sender: FDA-Public Use
  Company Number: 2006002744

PATIENT
  Age: 55 Year
  Sex: Female

DRUGS (3)
  1. RELPAX [Suspect]
     Indication: MIGRAINE
     Dosage: (40 MG, 1 D)
     Dates: start: 20051101
  2. ALL OTHER THERAPEUTIC PRODUCTS (ALL OTHER THERAPEUTIC PRODUCTS) [Concomitant]
  3. ATENOLOL [Concomitant]

REACTIONS (3)
  - COMPLEX REGIONAL PAIN SYNDROME [None]
  - INJURY [None]
  - SPLENIC INFARCTION [None]
